FAERS Safety Report 12415180 (Version 5)
Quarter: 2017Q4

REPORT INFORMATION
  Report Type: Spontaneous
  Country: JP (occurrence: JP)
  Receive Date: 20160530
  Receipt Date: 20171009
  Transmission Date: 20180320
  Serious: Yes (Hospitalization)
  Sender: FDA-Public Use
  Company Number: JP-ROCHE-1766215

PATIENT
  Age: 73 Year
  Sex: Female

DRUGS (2)
  1. ACTEMRA [Suspect]
     Active Substance: TOCILIZUMAB
     Indication: CASTLEMAN^S DISEASE
     Route: 041
     Dates: end: 20160518
  2. ACTEMRA [Suspect]
     Active Substance: TOCILIZUMAB
     Indication: CASTLEMAN^S DISEASE
     Route: 041
     Dates: start: 20160622

REACTIONS (2)
  - C-reactive protein increased [Recovering/Resolving]
  - Oesophageal carcinoma [Recovering/Resolving]
